FAERS Safety Report 7055344-4 (Version None)
Quarter: 2010Q4

REPORT INFORMATION
  Report Type: 
  Country: None (occurrence: None)
  Receive Date: 20101021
  Receipt Date: 20101013
  Transmission Date: 20110411
  Serious: Yes (Other)
  Sender: FDA-Public Use
  Company Number: US-ROXANE LABORATORIES, INC.-2010-RO-01355RO

PATIENT
  Age: 26 Year
  Sex: Male

DRUGS (3)
  1. RISPERIDONE [Suspect]
     Indication: SCHIZOPHRENIA, PARANOID TYPE
     Route: 048
  2. RISPERIDONE [Suspect]
     Route: 030
  3. HALOPERIDOL [Suspect]
     Indication: SCHIZOPHRENIA, PARANOID TYPE

REACTIONS (6)
  - BLUNTED AFFECT [None]
  - DRUG ERUPTION [None]
  - DRUG INEFFECTIVE [None]
  - PSYCHOMOTOR RETARDATION [None]
  - SALIVARY HYPERSECRETION [None]
  - TREATMENT NONCOMPLIANCE [None]
